FAERS Safety Report 5479605-5 (Version None)
Quarter: 2007Q4

REPORT INFORMATION
  Report Type: 
  Country: None (occurrence: None)
  Receive Date: 20071008
  Receipt Date: 20070928
  Transmission Date: 20080405
  Serious: Yes (Hospitalization)
  Sender: FDA-Public Use
  Company Number: US-ROCHE-522240

PATIENT
  Age: 41 Year
  Sex: Female

DRUGS (2)
  1. PEG-INTERFERON A-2A (RO 25-8310) [Suspect]
     Route: 058
     Dates: start: 20070814
  2. RIBAVIRIN [Suspect]
     Dosage: TAKEN AS THREE 200 MG TABLETS IN A.M. AND THREE 200 MG TABLETS IN P.M.
     Route: 048
     Dates: start: 20070814

REACTIONS (1)
  - SPINAL FRACTURE [None]
